FAERS Safety Report 19288095 (Version 1)
Quarter: 2021Q2

REPORT INFORMATION
  Report Type: Spontaneous
  Country: US (occurrence: US)
  Receive Date: 20210521
  Receipt Date: 20210521
  Transmission Date: 20210717
  Serious: Yes (Hospitalization)
  Sender: FDA-Public Use
  Company Number: US-GILEAD-2021-0531885

PATIENT
  Age: 58 Year
  Sex: Female

DRUGS (1)
  1. VEKLURY [Suspect]
     Active Substance: REMDESIVIR
     Indication: PRODUCT USED FOR UNKNOWN INDICATION
     Dosage: UNK
     Route: 042
     Dates: start: 202103

REACTIONS (3)
  - Drug hypersensitivity [Unknown]
  - Adverse drug reaction [Unknown]
  - Fall [Unknown]

NARRATIVE: CASE EVENT DATE: 202103
